FAERS Safety Report 8840071 (Version 2)
Quarter: 2012Q4

REPORT INFORMATION
  Report Type: 
  Country: US (occurrence: US)
  Receive Date: 20121015
  Receipt Date: 20121105
  Transmission Date: 20130627
  Serious: No
  Sender: FDA-Public Use
  Company Number: US-PFIZER INC-2012253778

PATIENT
  Age: 60 Year
  Sex: Male

DRUGS (21)
  1. LYRICA [Suspect]
     Dosage: 75 mg, 2x/day
     Dates: start: 20120911
  2. NEURONTIN [Suspect]
     Dosage: UNK
  3. OMEPRAZOLE [Concomitant]
     Indication: ACID REFLUX (ESOPHAGEAL)
     Dosage: 40 mg, 1x/day (with all in AM)
  4. OXYBUTIN [Concomitant]
     Indication: BLADDER SPASM
     Dosage: 5 mg, (3x/day or as needed)
  5. METHENAMINE HIPPURATE [Concomitant]
     Indication: BACTERIAL INFECTION
     Dosage: 1 g, 2x/day
  6. TRIAMCINOLONE ACETONIDE W/NYSTATIN [Concomitant]
     Indication: FUNGAL INFECTION
     Dosage: 60 g, 2x/day
  7. TRIAMCINOLONE ACETONIDE W/NYSTATIN [Concomitant]
     Indication: RASH
  8. SERTRALINE [Concomitant]
     Indication: ANXIETY
     Dosage: 100 mg, 1x/day
  9. CYMBALTA [Concomitant]
     Indication: ANXIETY
     Dosage: 60 mg, 1x/day (night)
  10. TRAMADOL [Concomitant]
     Indication: PAIN
     Dosage: 50 mg, 2x/day
  11. MULTIVITAMINS [Suspect]
     Dosage: UNK, 1x/day
  12. VITAMIN B12 [Concomitant]
     Dosage: 1000 ug, 1x/day
  13. VITAMIN D3 [Concomitant]
     Dosage: 2000 I.U, 1 x day
  14. VITAMIN C [Concomitant]
     Dosage: 1000 mg, 1x/day
  15. MAGNESIUM [Concomitant]
     Dosage: 250 mg, 1x/day
  16. MOTRIN [Concomitant]
     Indication: SLEEP DISORDER
     Dosage: 200 mg, (2-3 at night if needed)
  17. FOLIC ACID [Concomitant]
     Dosage: 400 ug, 1x/day
  18. PHENAZOPYRIDINE [Concomitant]
     Indication: UTI
     Dosage: 200 mg, 3x/day (as needed for UTI / penis pain)
  19. PHENAZOPYRIDINE [Concomitant]
     Indication: PENILE PAIN
  20. LIDOCAINE [Concomitant]
     Indication: NUMBNESS
     Dosage: 2% jelly gel 30 ml, apply 3-4 x daily
  21. BOTOX [Concomitant]
     Dosage: UNK
     Dates: start: 20120620

REACTIONS (1)
  - Dry mouth [Unknown]
